FAERS Safety Report 10602271 (Version 2)
Quarter: 2014Q4

REPORT INFORMATION
  Report Type: Spontaneous
  Country: JP (occurrence: JP)
  Receive Date: 20141124
  Receipt Date: 20141215
  Transmission Date: 20150529
  Serious: Yes (Other)
  Sender: FDA-Public Use
  Company Number: JP-PFIZER INC-2014318412

PATIENT
  Age: 48 Year
  Sex: Male

DRUGS (3)
  1. MEDROL [Concomitant]
     Active Substance: METHYLPREDNISOLONE
     Dosage: UNK
  2. NORVASC [Concomitant]
     Active Substance: AMLODIPINE BESYLATE
     Dosage: UNK
  3. CYCLOSPORIN [Suspect]
     Active Substance: CYCLOSPORINE

REACTIONS (1)
  - Gingival hyperplasia [Recovered/Resolved]
